FAERS Safety Report 10152039 (Version 1)
Quarter: 2014Q2

REPORT INFORMATION
  Report Type: Spontaneous
  Country: GB (occurrence: None)
  Receive Date: 20140501
  Receipt Date: 20140501
  Transmission Date: 20141212
  Serious: Yes (Other)
  Sender: FDA-Public Use
  Company Number: FK201401508

PATIENT
  Age: 14 Year
  Sex: Male
  Weight: 65.5 kg

DRUGS (14)
  1. COLISTIMETHATE [Suspect]
     Indication: CYSTIC FIBROSIS
     Route: 042
     Dates: start: 20140331
  2. CEFTAZIDIME [Suspect]
     Indication: CYSTIC FIBROSIS
     Route: 042
     Dates: start: 20140331
  3. CREON(PANCREATIN)(PANCREATIN) [Concomitant]
  4. DOMEPERIDONE(DOMEPERIDONE)(DOMPERIDONE) [Concomitant]
  5. DORNASE ALFA(DORNASE ALFA)(DORNASE ALFA) [Concomitant]
  6. FLIXONASE(FLUTICASONE PROPIONATE)(FLUTICASONE PROPIONATE) [Concomitant]
  7. MENADIOL(MENADIOL)(MENADIOL) [Concomitant]
  8. OMEPRAZOLE(OMEPRAZOLE)(OMEPRAZOLE [Concomitant]
  9. PROMIXIN(COLISTIMETHATE SODIUM)(COLISTIMETHATE SODIUM) [Concomitant]
  10. SALBUTAMOL(COLISTIMETHATE SODIUM)(COLISTIMETHATE SODIUM) [Concomitant]
  11. SODIUM CHLORIDE SOLUTION (SODIUM CHLORIDE) [Concomitant]
  12. URSODEOXYCHOLIC ACID (URSODEOXYCHOLIC ACID)(URSODEOXYCHOLIC ACID) [Concomitant]
  13. VITAMIN A AND D IN COMBINATION(VITAMIN A AND D IN COMBINATION)(VITAMIN A AND D IN COMBINATION) [Concomitant]
  14. VITAMIN E (TOCOPHERLY ACETATE)(TOCOPHERYL ACETATE) [Concomitant]

REACTIONS (1)
  - Neutropenia [None]
